FAERS Safety Report 9656778 (Version 2)
Quarter: 2013Q4

REPORT INFORMATION
  Report Type: Spontaneous
  Country: JP (occurrence: JP)
  Receive Date: 20131030
  Receipt Date: 20131126
  Transmission Date: 20140711
  Serious: Yes (Hospitalization)
  Sender: FDA-Public Use
  Company Number: JP-PFIZER INC-2013304852

PATIENT
  Age: 70 Year
  Sex: 0

DRUGS (2)
  1. JZOLOFT [Suspect]
     Dosage: UNK
     Route: 048
  2. MILNACIPRAN HYDROCHLORIDE [Suspect]
     Dosage: UNK

REACTIONS (1)
  - Hypokalaemia [Recovered/Resolved]
